FAERS Safety Report 4334558-8 (Version None)
Quarter: 2004Q2

REPORT INFORMATION
  Report Type: 
  Country: None (occurrence: None)
  Receive Date: 20040407
  Receipt Date: 20040330
  Transmission Date: 20050107
  Serious: Yes (Hospitalization)
  Sender: FDA-Public Use
  Company Number: FR-ROCHE-363425

PATIENT
  Age: 35 Year
  Sex: Female
  Weight: 65 kg

DRUGS (18)
  1. FUZEON [Suspect]
     Indication: HIV INFECTION
     Route: 058
     Dates: start: 20031115
  2. BACTRIM DS [Concomitant]
  3. FUNGIZONE [Concomitant]
  4. LIPANTHYL [Concomitant]
  5. AZADOSE [Concomitant]
  6. AGENERASE [Concomitant]
     Indication: RETROVIRAL INFECTION
     Dosage: ALSO REPORTED IN SEPT AND NOV 2003.
     Dates: start: 20020215
  7. NORVIR [Concomitant]
     Indication: RETROVIRAL INFECTION
     Dosage: ALSO REPORTED IN FEB 2002, SEPT AND NOV 2003.
     Dates: start: 19970615
  8. EPIVIR [Concomitant]
     Indication: RETROVIRAL INFECTION
     Dosage: ALSO REPORTED IN JUN 1996, JUNE 1997, MAR 1999, MAR 2001, SEPT 2003 AND NOV 2003.
     Dates: start: 19950615
  9. RETROVIR [Concomitant]
     Indication: RETROVIRAL INFECTION
     Dosage: ALSO REPORTED IN MAR 1994, JAN 1995, JUN 1995, JUN 1996.
     Dates: start: 19900315
  10. VIRAMUNE [Concomitant]
     Indication: RETROVIRAL INFECTION
     Dosage: ALSO REPORTED IN SEP 2003.
     Dates: start: 20020215
  11. VIDEX [Concomitant]
     Indication: RETROVIRAL INFECTION
     Dosage: ALSO REPORTED IN JAN 2000, MAR 2001.
     Dates: start: 19940215
  12. HIVID [Concomitant]
     Indication: RETROVIRAL INFECTION
     Dosage: ALSO REPORTED JAN 1995.
     Dates: start: 19940715
  13. ZERIT [Concomitant]
     Indication: RETROVIRAL INFECTION
     Dosage: ALSO REPORTED IN MAR 1999, JAN 2000.
     Dates: start: 19970615
  14. VIRACEPT [Concomitant]
     Indication: RETROVIRAL INFECTION
     Dates: start: 19990315
  15. SUSTIVA [Concomitant]
     Indication: RETROVIRAL INFECTION
     Dates: start: 20000115
  16. KALETRA [Concomitant]
     Indication: RETROVIRAL INFECTION
     Dates: start: 20010315
  17. VIREAD [Concomitant]
     Indication: RETROVIRAL INFECTION
     Dates: start: 20020215
  18. CRIXIVAN [Concomitant]
     Indication: RETROVIRAL INFECTION
     Dates: start: 19960615

REACTIONS (1)
  - SPLENIC INFARCTION [None]
